FAERS Safety Report 26149460 (Version 1)
Quarter: 2025Q4

REPORT INFORMATION
  Report Type: Spontaneous
  Country: EU (occurrence: EU)
  Receive Date: 20251212
  Receipt Date: 20251212
  Transmission Date: 20260118
  Serious: Yes (Other)
  Sender: ALEXION PHARMACEUTICALS
  Company Number: None

PATIENT
  Age: 55 Year
  Sex: Female

DRUGS (19)
  1. ROSUVASTATIN [Suspect]
     Active Substance: ROSUVASTATIN
     Indication: Cerebrovascular accident
     Dosage: 40 MILLIGRAM
     Route: 065
  2. ROSUVASTATIN [Suspect]
     Active Substance: ROSUVASTATIN
     Indication: Hyperlipidaemia
     Dosage: UNK
     Route: 065
  3. FLUARIX NOS [Concomitant]
     Active Substance: INFLUENZA VIRUS VACCINE
     Dosage: 15 MICROGRAM, ONCE
     Route: 065
  4. ASPIRIN [Concomitant]
     Active Substance: ASPIRIN
     Dosage: 75 MILLIGRAM, 1/DAY
     Route: 065
     Dates: start: 20181127
  5. Comirnaty [Concomitant]
     Dosage: 30 MICROGRAM, ONCE
     Route: 065
  6. CYANOCOBALAMIN [Concomitant]
     Active Substance: CYANOCOBALAMIN
     Dosage: 1 MILLIGRAM, 2/DAY
     Route: 065
     Dates: start: 20181129
  7. Furosemid medical valley [Concomitant]
     Dosage: 20 MILLIGRAM, AS NEEDED
     Route: 065
  8. Folvidon [Concomitant]
     Dosage: 1 MILLIGRAM, 1/DAY
     Route: 065
     Dates: start: 20221220, end: 20251113
  9. PARAFLEX [Concomitant]
     Active Substance: CHLORZOXAZONE
     Dosage: 250 MILLIGRAM, 4/DAY
     Route: 065
     Dates: start: 20191127
  10. AMITRIPTYLINE [Concomitant]
     Active Substance: AMITRIPTYLINE
     Dosage: 25 MILLIGRAM, 2/DAY
     Route: 065
     Dates: start: 20200219, end: 20251118
  11. CALCIUM CARBONATE\CHOLECALCIFEROL [Concomitant]
     Active Substance: CALCIUM CARBONATE\CHOLECALCIFEROL
     Dosage: 1 DOSAGE FORM, 2/DAY
     Route: 065
     Dates: start: 20231201
  12. LANTUS SOLOSTAR [Concomitant]
     Active Substance: INSULIN GLARGINE
     Dosage: UNK
     Route: 065
  13. NOVORAPID [Concomitant]
     Active Substance: INSULIN ASPART
     Dosage: 3 DOSAGE FORM, 3/DAY
     Route: 065
     Dates: start: 20231205, end: 20251121
  14. ALENDRONATE SODIUM [Concomitant]
     Active Substance: ALENDRONATE SODIUM
     Dosage: 70 MILLIGRAM, 1/WEEK
     Route: 065
     Dates: start: 20231205
  15. NOVORAPID [Concomitant]
     Active Substance: INSULIN ASPART
     Dosage: UNK
     Route: 065
  16. VENLAFAXINE [Concomitant]
     Active Substance: VENLAFAXINE HYDROCHLORIDE
     Dosage: 75 MILLIGRAM, 2/DAY
     Route: 065
     Dates: start: 20231030, end: 20251119
  17. METOCLOPRAMIDE [Concomitant]
     Active Substance: METOCLOPRAMIDE
     Dosage: 10 MILLIGRAM, 3/DAY
     Route: 065
     Dates: start: 20230829
  18. ACETAMINOPHEN [Concomitant]
     Active Substance: ACETAMINOPHEN
     Dosage: 1000 MILLIGRAM, 3/DAY
     Route: 065
     Dates: start: 20190523, end: 20251117
  19. GABAPENTIN [Concomitant]
     Active Substance: GABAPENTIN
     Dosage: 300 MILLIGRAM, 3/DAY
     Route: 065
     Dates: start: 20200220, end: 20251120

REACTIONS (3)
  - Rhabdomyolysis [Not Recovered/Not Resolved]
  - Acute kidney injury [Not Recovered/Not Resolved]
  - Gait inability [Not Recovered/Not Resolved]

NARRATIVE: CASE EVENT DATE: 20251113
